FAERS Safety Report 12376665 (Version 2)
Quarter: 2016Q2

REPORT INFORMATION
  Report Type: Report from Study
  Country: US (occurrence: US)
  Receive Date: 20160517
  Receipt Date: 20160517
  Transmission Date: 20160815
  Serious: No
  Sender: FDA-Public Use
  Company Number: US-MALLINCKRODT-T201502440

PATIENT
  Age: 54 Year
  Sex: Female

DRUGS (6)
  1. CYMBALTA [Concomitant]
     Active Substance: DULOXETINE HYDROCHLORIDE
     Indication: FIBROMYALGIA
  2. PREDNISONE. [Suspect]
     Active Substance: PREDNISONE
     Indication: COUGH
     Dosage: 50 MG
     Route: 065
  3. POTASSIUM [Concomitant]
     Active Substance: POTASSIUM
     Dosage: QD
  4. GABAPENTIN. [Concomitant]
     Active Substance: GABAPENTIN
     Indication: NEURALGIA
  5. CELLCEPT [Concomitant]
     Active Substance: MYCOPHENOLATE MOFETIL\MYCOPHENOLATE MOFETIL HYDROCHLORIDE
     Dosage: 250 MG, QD
  6. REPOSITORY CORTICOTROPIN INJECTION [Suspect]
     Active Substance: CORTICOTROPIN
     Indication: SYSTEMIC LUPUS ERYTHEMATOSUS
     Dosage: 80 UNITS, TWICE WEEKLY
     Route: 058
     Dates: start: 20150402, end: 20150601

REACTIONS (10)
  - Arthralgia [Recovering/Resolving]
  - Swelling [Unknown]
  - Breast cyst [Recovered/Resolved]
  - Cough [Not Recovered/Not Resolved]
  - Feeling abnormal [Recovered/Resolved]
  - Insomnia [Recovering/Resolving]
  - Blood glucose increased [Unknown]
  - Weight increased [Unknown]
  - Hypoaesthesia [Recovering/Resolving]
  - Pain [Unknown]

NARRATIVE: CASE EVENT DATE: 201504
